FAERS Safety Report 7460612-8 (Version None)
Quarter: 2011Q2

REPORT INFORMATION
  Report Type: 
  Country: None (occurrence: None)
  Receive Date: 20110419
  Receipt Date: 20110408
  Transmission Date: 20111010
  Serious: Yes (Hospitalization, Other)
  Sender: FDA-Public Use
  Company Number: 2011PROUSA00243

PATIENT
  Age: 86 Year
  Sex: Male
  Weight: 93 kg

DRUGS (17)
  1. LIDOCDAINE HYDROCHLORIDE [Concomitant]
  2. DIOVAN [Concomitant]
  3. LOPID [Concomitant]
  4. CELEBREX [Concomitant]
  5. PROVENGE [Suspect]
     Indication: PROSTATE CANCER METASTATIC
     Dosage: 250 ML, SINGLE, INTRAVENOUS
     Route: 042
     Dates: start: 20110224, end: 20110224
  6. FIORINAL (ACETYLSALICYLIC ACID, BUTALBITAL, CAFFEINE, PHENACETIN) [Concomitant]
  7. GLIMEPIRIDE [Concomitant]
  8. COQ10 (UBIDECARENONE) [Concomitant]
  9. MULTIPLE VITAMINS (ASCORBIC ACID, ERGOCALCIFEROL, FOLIC ACID, RETINOL, [Concomitant]
  10. ALLEGRA [Concomitant]
  11. FLAXSEED OIL (LINUM USITATISSIMUM SEED OIL) [Concomitant]
  12. SAW PALMETTO (SERENOA REPENS) [Concomitant]
  13. VICODIN [Concomitant]
  14. GLUCOSAMINE (GLUCOSAMINE) [Concomitant]
  15. ASPIRIN [Concomitant]
  16. KETOCONAZOLE [Concomitant]
  17. CALCIUM (CALCIUM) [Concomitant]

REACTIONS (11)
  - PROSTATE CANCER METASTATIC [None]
  - SINUS DISORDER [None]
  - URETHRAL STENOSIS [None]
  - HYPOAESTHESIA [None]
  - MUSCULAR WEAKNESS [None]
  - SPINAL CORD COMPRESSION [None]
  - GAIT DISTURBANCE [None]
  - PARAESTHESIA [None]
  - HAEMOGLOBIN DECREASED [None]
  - INTERVERTEBRAL DISC PROTRUSION [None]
  - BLADDER DILATATION [None]
